FAERS Safety Report 18126270 (Version 1)
Quarter: 2020Q3

REPORT INFORMATION
  Report Type: Spontaneous
  Country: US (occurrence: US)
  Receive Date: 20200808
  Receipt Date: 20200808
  Transmission Date: 20201103
  Serious: No
  Sender: FDA-Public Use
  Company Number: US-SHIRE-US202024900

PATIENT
  Age: 74 Year
  Sex: Female

DRUGS (4)
  1. CARTIA XT [Concomitant]
     Active Substance: DILTIAZEM HYDROCHLORIDE
     Indication: BLOOD PRESSURE MANAGEMENT
     Dosage: 180 MILLIGRAM
  2. LIALDA [Suspect]
     Active Substance: MESALAMINE
     Dosage: 2 TABLETS, 1.2 G, DAILY
     Route: 048
  3. VASCEPA [Concomitant]
     Active Substance: ICOSAPENT ETHYL
     Indication: SUPPLEMENTATION THERAPY
     Dosage: 1 GRAM, 2 DAILY
     Route: 065
  4. LIALDA [Suspect]
     Active Substance: MESALAMINE
     Indication: COLITIS ULCERATIVE
     Dosage: 1.2 GRAM, 2 TABLETS IN AM AND 2 TABLETS IN THE EVENING
     Route: 048

REACTIONS (2)
  - Irritability [Unknown]
  - Drug ineffective [Recovered/Resolved]

NARRATIVE: CASE EVENT DATE: 202007
